FAERS Safety Report 6431889-2 (Version None)
Quarter: 2009Q4

REPORT INFORMATION
  Report Type: 
  Country: None (occurrence: None)
  Receive Date: 20091109
  Receipt Date: 20091028
  Transmission Date: 20100525
  Serious: Yes (Hospitalization)
  Sender: FDA-Public Use
  Company Number: CA-BIOGENIDEC-2009BI026711

PATIENT
  Sex: Female

DRUGS (2)
  1. TYSABRI [Suspect]
     Indication: MULTIPLE SCLEROSIS
     Route: 042
     Dates: start: 20090506
  2. TYSABRI [Suspect]
     Route: 042
     Dates: start: 20090506

REACTIONS (3)
  - BLINDNESS [None]
  - DIPLEGIA [None]
  - MULTIPLE SCLEROSIS RELAPSE [None]
